FAERS Safety Report 6133384-7 (Version None)
Quarter: 2009Q1

REPORT INFORMATION
  Report Type: 
  Country: None (occurrence: None)
  Receive Date: 20090326
  Receipt Date: 20090317
  Transmission Date: 20090719
  Serious: Yes (Hospitalization, Other)
  Sender: FDA-Public Use
  Company Number: PHHY2009MX08844

PATIENT
  Age: 89 Year
  Sex: Male

DRUGS (1)
  1. EXELON [Suspect]
     Indication: DEMENTIA ALZHEIMER'S TYPE
     Dosage: 1 DF, Q72H
     Route: 062
     Dates: start: 20090210, end: 20090211

REACTIONS (4)
  - FALL [None]
  - HIP FRACTURE [None]
  - HIP SURGERY [None]
  - LOSS OF CONSCIOUSNESS [None]
